FAERS Safety Report 4864828-6 (Version None)
Quarter: 2005Q4

REPORT INFORMATION
  Report Type: 
  Country: None (occurrence: None)
  Receive Date: 20051201
  Receipt Date: 20050709
  Transmission Date: 20060501
  Serious: No
  Sender: FDA-Public Use
  Company Number: 2005PV000290

PATIENT
  Age: 73 Year
  Sex: Male
  Weight: 104.3273 kg

DRUGS (4)
  1. BYETTA [Suspect]
     Indication: DIABETES MELLITUS NON-INSULIN-DEPENDENT
     Dosage: 5 MCG; BID; SC
     Route: 058
     Dates: start: 20050702
  2. LANTUS [Concomitant]
  3. GLUCOVANCE [Concomitant]
  4. MAVIK [Concomitant]

REACTIONS (3)
  - BLOOD GLUCOSE INCREASED [None]
  - HEADACHE [None]
  - NAUSEA [None]
